FAERS Safety Report 25472937 (Version 1)
Quarter: 2025Q2

REPORT INFORMATION
  Report Type: Spontaneous
  Country: US (occurrence: None)
  Receive Date: 20250623
  Receipt Date: 20250623
  Transmission Date: 20250716
  Serious: Yes (Disabling, Other)
  Sender: FDA-CTU
  Company Number: None

PATIENT
  Age: 27 Year
  Sex: Male
  Weight: 103.5 kg

DRUGS (1)
  1. CIPROFLOXACIN [Suspect]
     Active Substance: CIPROFLOXACIN
     Indication: Bacterial infection
     Dosage: OTHER QUANTITY : 5 CAPSULE(S);?FREQUENCY : EVERY 12 HOURS;?
     Route: 048
     Dates: start: 20250518, end: 20250521

REACTIONS (18)
  - Fatigue [None]
  - Muscular weakness [None]
  - Musculoskeletal discomfort [None]
  - Tendon discomfort [None]
  - Muscle tightness [None]
  - Muscle twitching [None]
  - Muscle twitching [None]
  - Limb discomfort [None]
  - Muscle spasms [None]
  - Pain in extremity [None]
  - Hypoaesthesia [None]
  - Phantom limb syndrome [None]
  - Muscular weakness [None]
  - Anxiety [None]
  - Suicidal ideation [None]
  - Brain fog [None]
  - Confusional state [None]
  - Ear discomfort [None]

NARRATIVE: CASE EVENT DATE: 20250519
